FAERS Safety Report 9262337 (Version 2)
Quarter: 2013Q2

REPORT INFORMATION
  Report Type: Spontaneous
  Country: IE (occurrence: None)
  Receive Date: 20130425
  Receipt Date: 20130503
  Transmission Date: 20140414
  Serious: No
  Sender: FDA-Public Use
  Company Number: SP06588

PATIENT
  Age: 54 Year
  Sex: Male

DRUGS (1)
  1. MOVIPREP [Suspect]
     Indication: BOWEL PREPARATION
     Route: 048
     Dates: start: 20130416, end: 20130416

REACTIONS (4)
  - Drug hypersensitivity [None]
  - Blister [None]
  - Feeling abnormal [None]
  - Feeling hot [None]
